FAERS Safety Report 4825205-7 (Version None)
Quarter: 2005Q4

REPORT INFORMATION
  Report Type: 
  Country: None (occurrence: None)
  Receive Date: 20051109
  Receipt Date: 20051027
  Transmission Date: 20060501
  Serious: Yes (Hospitalization, Other)
  Sender: FDA-Public Use
  Company Number: 2005103835

PATIENT
  Age: 41 Year
  Sex: Male

DRUGS (6)
  1. ATARAX [Suspect]
     Indication: ILL-DEFINED DISORDER
     Dosage: 200 MG (100 MG, 2 IN 1 D), ORAL
     Route: 048
     Dates: start: 20050519, end: 20050525
  2. TERCIAN (CYAMEMAZINE) [Suspect]
     Indication: ILL-DEFINED DISORDER
     Dosage: 25 MG (25 MG, 1 IN 1 D), ORAL
     Route: 048
     Dates: end: 20050525
  3. ANTIHISTAMINES (ANTIHISTAMINES) [Suspect]
     Indication: HYPERSENSITIVITY
  4. TRANXENE [Concomitant]
  5. LEXOMIL (BROMAZEPAM) [Concomitant]
  6. OXAZEPAM [Concomitant]

REACTIONS (12)
  - ANXIETY [None]
  - CHEST DISCOMFORT [None]
  - CLONUS [None]
  - ELECTROCARDIOGRAM QT PROLONGED [None]
  - HYPERVENTILATION [None]
  - MALAISE [None]
  - MUSCULOSKELETAL STIFFNESS [None]
  - PANIC ATTACK [None]
  - PROSTRATION [None]
  - PYREXIA [None]
  - SELF-MEDICATION [None]
  - TREMOR [None]
